FAERS Safety Report 5908147-5 (Version None)
Quarter: 2008Q4

REPORT INFORMATION
  Report Type: 
  Country: None (occurrence: None)
  Receive Date: 20081003
  Receipt Date: 20080925
  Transmission Date: 20090506
  Serious: Yes (Other)
  Sender: FDA-Public Use
  Company Number: JP-PFIZER INC-2008081559

PATIENT
  Age: 72 Year
  Sex: Male

DRUGS (2)
  1. SULFASALAZINE [Suspect]
     Indication: RHEUMATOID ARTHRITIS
     Dosage: DAILY DOSE:500MG
  2. PREDNISOLONE [Suspect]
     Dosage: DAILY DOSE:5MG
     Route: 048

REACTIONS (1)
  - AGRANULOCYTOSIS [None]
